FAERS Safety Report 17266939 (Version 1)
Quarter: 2020Q1

REPORT INFORMATION
  Report Type: Spontaneous
  Country: US (occurrence: US)
  Receive Date: 20200114
  Receipt Date: 20200114
  Transmission Date: 20200409
  Serious: No
  Sender: FDA-Public Use
  Company Number: US-MTPC-MTDA2020-0039105

PATIENT

DRUGS (1)
  1. RADICAVA [Suspect]
     Active Substance: EDARAVONE
     Indication: AMYOTROPHIC LATERAL SCLEROSIS
     Dosage: AS PRESCRIBED
     Route: 042

REACTIONS (3)
  - Device issue [Unknown]
  - Poor venous access [Unknown]
  - Fatigue [Unknown]

NARRATIVE: CASE EVENT DATE: 20200107
